FAERS Safety Report 5158068-3 (Version None)
Quarter: 2006Q4

REPORT INFORMATION
  Report Type: 
  Country: None (occurrence: None)
  Receive Date: 20061116
  Receipt Date: 20061101
  Transmission Date: 20070319
  Serious: Yes (Hospitalization)
  Sender: FDA-Public Use
  Company Number: 2006BH014193

PATIENT
  Age: 55 Year
  Sex: Female

DRUGS (1)
  1. SODIUM CHLORIDE 0.9% [Suspect]
     Indication: CARDIAC DISORDER
     Dosage: IV
     Route: 042
     Dates: start: 20061024, end: 20061024

REACTIONS (7)
  - BLOOD PRESSURE DECREASED [None]
  - CHILLS [None]
  - COLD SWEAT [None]
  - FALL [None]
  - FEELING COLD [None]
  - HYPERSENSITIVITY [None]
  - PALLOR [None]
